FAERS Safety Report 23573562 (Version 1)
Quarter: 2024Q1

REPORT INFORMATION
  Report Type: Other
  Country: IT (occurrence: None)
  Receive Date: 20240228
  Receipt Date: 20240228
  Transmission Date: 20240410
  Serious: Yes (Other)
  Sender: FDA-Public Use
  Company Number: IT-ROCHE-3514179

PATIENT

DRUGS (9)
  1. ATEZOLIZUMAB [Suspect]
     Active Substance: ATEZOLIZUMAB
     Indication: Small cell lung cancer
     Route: 065
  2. CARBOPLATIN [Suspect]
     Active Substance: CARBOPLATIN
     Indication: Small cell lung cancer
     Route: 065
  3. ETOPOSIDE [Suspect]
     Active Substance: ETOPOSIDE
     Indication: Small cell lung cancer
     Route: 065
  4. CISPLATIN [Suspect]
     Active Substance: CISPLATIN
     Indication: Small cell lung cancer
     Route: 065
  5. TOPOTECAN [Suspect]
     Active Substance: TOPOTECAN HYDROCHLORIDE
     Indication: Small cell lung cancer
     Route: 065
  6. LURBINECTEDIN [Suspect]
     Active Substance: LURBINECTEDIN
     Indication: Small cell lung cancer
     Route: 065
  7. CYCLOPHOSPHAMIDE [Suspect]
     Active Substance: CYCLOPHOSPHAMIDE
     Indication: Small cell lung cancer
     Route: 065
  8. DOXORUBICIN [Suspect]
     Active Substance: DOXORUBICIN
     Indication: Small cell lung cancer
     Route: 065
  9. VINCRISTINE [Suspect]
     Active Substance: VINCRISTINE
     Indication: Small cell lung cancer
     Route: 065

REACTIONS (26)
  - Sepsis [Unknown]
  - Febrile neutropenia [Unknown]
  - Anaemia [Unknown]
  - Fatigue [Unknown]
  - Platelet count decreased [Unknown]
  - Neutrophil count decreased [Unknown]
  - Diarrhoea [Unknown]
  - Amylase increased [Unknown]
  - Encephalopathy [Unknown]
  - Lipase increased [Unknown]
  - Myalgia [Unknown]
  - Myasthenia gravis [Unknown]
  - Myositis [Unknown]
  - Constipation [Unknown]
  - Hypothyroidism [Unknown]
  - Stomatitis [Unknown]
  - Hyperthyroidism [Unknown]
  - Alanine aminotransferase increased [Unknown]
  - Pruritus [Unknown]
  - Aspartate aminotransferase increased [Unknown]
  - Rash maculo-papular [Unknown]
  - Adrenal insufficiency [Unknown]
  - Infusion related reaction [Unknown]
  - Pneumonitis [Unknown]
  - Nausea [Unknown]
  - Dermatitis acneiform [Unknown]
